FAERS Safety Report 7555585-3 (Version None)
Quarter: 2011Q2

REPORT INFORMATION
  Report Type: 
  Country: None (occurrence: None)
  Receive Date: 20110617
  Receipt Date: 20080107
  Transmission Date: 20111010
  Serious: Yes (Other)
  Sender: FDA-Public Use
  Company Number: PHMT2007CA02048

PATIENT
  Sex: Female

DRUGS (6)
  1. AMOXICILLIN [Concomitant]
  2. PHENAZOPYRIDINE HCL TAB [Concomitant]
  3. XYLOCAINE [Concomitant]
  4. SANDOSTATIN LAR [Suspect]
     Indication: VIPOMA
     Dosage: 20 MG, EVERY 04 WEEKS
     Route: 030
     Dates: start: 20050407
  5. OCTREOTIDE ACETATE [Suspect]
     Route: 042
     Dates: start: 20050101
  6. MIDAZOLAM HCL [Concomitant]
     Dosage: 5 MG, UNK

REACTIONS (6)
  - OESOPHAGEAL SPASM [None]
  - SEROMA [None]
  - OESOPHAGEAL OBSTRUCTION [None]
  - URINARY TRACT INFECTION [None]
  - BREAST CANCER [None]
  - SENSATION OF FOREIGN BODY [None]
